FAERS Safety Report 6111498-5 (Version None)
Quarter: 2009Q1

REPORT INFORMATION
  Report Type: 
  Country: None (occurrence: None)
  Receive Date: 20090310
  Receipt Date: 20090310
  Transmission Date: 20090719
  Serious: Yes (Life-Threatening)
  Sender: FDA-Public Use
  Company Number: None

PATIENT
  Sex: Male
  Weight: 98.4306 kg

DRUGS (2)
  1. SIMVASTATIN [Suspect]
     Indication: DIABETIC VASCULAR DISORDER
     Dosage: 10MG  QDAY PO
     Route: 048
     Dates: start: 20080723, end: 20090304
  2. SIMVASTATIN [Suspect]
     Indication: PROPHYLAXIS
     Dosage: 10MG  QDAY PO
     Route: 048
     Dates: start: 20080723, end: 20090304

REACTIONS (3)
  - BLOOD CALCIUM INCREASED [None]
  - CONFUSIONAL STATE [None]
  - RHABDOMYOLYSIS [None]
